FAERS Safety Report 11358760 (Version 1)
Quarter: 2015Q3

REPORT INFORMATION
  Report Type: Spontaneous
  Country: US (occurrence: None)
  Receive Date: 20150716
  Receipt Date: 20150716
  Transmission Date: 20151125
  Serious: Yes (Hospitalization)
  Sender: FDA-Public Use
  Company Number: 2014PROUSA04169

PATIENT
  Age: 55 Year
  Sex: Male
  Weight: 77.1 kg

DRUGS (3)
  1. XGEVA [Concomitant]
     Active Substance: DENOSUMAB
  2. PROVENGE [Suspect]
     Active Substance: SIPULEUCEL-T
     Indication: PROSTATE CANCER METASTATIC
     Dosage: 250 ML, SINGLE, INTRAVENOUS
     Route: 042
     Dates: start: 20141117, end: 20141117
  3. LUPRON (LEUPRORELIN ACETATE) [Concomitant]

REACTIONS (6)
  - Dizziness [None]
  - Device related sepsis [None]
  - Pyrexia [None]
  - Oropharyngeal pain [None]
  - Fatigue [None]
  - Culture positive [None]

NARRATIVE: CASE EVENT DATE: 20141122
